FAERS Safety Report 8613381-X (Version None)
Quarter: 2012Q3

REPORT INFORMATION
  Report Type: 
  Country: None (occurrence: None)
  Receive Date: 20120822
  Receipt Date: 20120723
  Transmission Date: 20120928
  Serious: Yes (Other)
  Sender: FDA-Public Use
  Company Number: US-009507513-1207USA010970

PATIENT

DRUGS (6)
  1. AMPYRA [Suspect]
  2. BUPROPION HYDROCHLORIDE [Suspect]
  3. ZOCOR [Suspect]
     Route: 048
  4. DIAZEPAM [Suspect]
  5. GABAPENTIN [Suspect]
  6. REBIF [Suspect]

REACTIONS (5)
  - MENTAL DISORDER [None]
  - SUICIDAL IDEATION [None]
  - CONVULSION [None]
  - URINARY INCONTINENCE [None]
  - EYE MOVEMENT DISORDER [None]
